FAERS Safety Report 15673097 (Version 2)
Quarter: 2019Q1

REPORT INFORMATION
  Report Type: Spontaneous
  Country: US (occurrence: US)
  Receive Date: 20181129
  Receipt Date: 20190104
  Transmission Date: 20190417
  Serious: Yes (Hospitalization)
  Sender: FDA-Public Use
  Company Number: US-FRESENIUS KABI-FK201812098

PATIENT
  Age: 72 Year
  Sex: Male
  Weight: 67.4 kg

DRUGS (8)
  1. PEMBROLIZUMAB. [Suspect]
     Active Substance: PEMBROLIZUMAB
     Indication: LUNG ADENOCARCINOMA
     Route: 042
     Dates: start: 20181002, end: 20181002
  2. PEMBROLIZUMAB. [Suspect]
     Active Substance: PEMBROLIZUMAB
     Route: 042
     Dates: start: 20181030
  3. EPACADOSTAT [Suspect]
     Active Substance: EPACADOSTAT
     Indication: LUNG ADENOCARCINOMA
     Route: 048
     Dates: start: 20181002, end: 20181017
  4. EPACADOSTAT [Suspect]
     Active Substance: EPACADOSTAT
     Route: 048
     Dates: start: 20181030
  5. PEMETREXED. [Suspect]
     Active Substance: PEMETREXED
     Indication: LUNG ADENOCARCINOMA
     Route: 042
     Dates: start: 20180912, end: 20181023
  6. PEMETREXED. [Suspect]
     Active Substance: PEMETREXED
     Route: 042
     Dates: start: 20181030
  7. CARBOPLATIN (MANUFACTURER UNKNOWN) [Suspect]
     Active Substance: CARBOPLATIN
     Indication: LUNG ADENOCARCINOMA
     Route: 042
     Dates: start: 20180912, end: 20181023
  8. CARBOPLATIN (MANUFACTURER UNKNOWN) [Suspect]
     Active Substance: CARBOPLATIN
     Route: 042
     Dates: start: 20181030

REACTIONS (1)
  - Febrile neutropenia [Recovered/Resolved]

NARRATIVE: CASE EVENT DATE: 20181017
